FAERS Safety Report 6592467-8 (Version None)
Quarter: 2010Q1

REPORT INFORMATION
  Report Type: 
  Country: None (occurrence: None)
  Receive Date: 20100221
  Receipt Date: 20091016
  Transmission Date: 20100710
  Serious: No
  Sender: FDA-Public Use
  Company Number: US-ALLERGAN-0914419US

PATIENT
  Sex: Male

DRUGS (2)
  1. BOTOX [Suspect]
     Indication: PAIN
     Dosage: 100 UNITS, SINGLE
     Route: 030
     Dates: start: 20091005, end: 20091005
  2. LISINOPRIL [Concomitant]
     Dosage: UNK

REACTIONS (3)
  - CHEST DISCOMFORT [None]
  - CHILLS [None]
  - RASH [None]
